FAERS Safety Report 4367179-1 (Version None)
Quarter: 2004Q2

REPORT INFORMATION
  Report Type: 
  Country: None (occurrence: None)
  Receive Date: 20040528
  Receipt Date: 20040521
  Transmission Date: 20050107
  Serious: Yes (Other)
  Sender: FDA-Public Use
  Company Number: PHNU2004DE01881

PATIENT
  Sex: Male

DRUGS (3)
  1. TRILEPTAL [Suspect]
     Dates: start: 20040519, end: 20040519
  2. DISTRANEURIN                            /GFR/ [Concomitant]
  3. ACETAMINOPHEN [Concomitant]

REACTIONS (1)
  - ANAPHYLACTIC SHOCK [None]
